FAERS Safety Report 8163210-6 (Version None)
Quarter: 2012Q1

REPORT INFORMATION
  Report Type: 
  Country: None (occurrence: None)
  Receive Date: 20120224
  Receipt Date: 20120221
  Transmission Date: 20120608
  Serious: No
  Sender: FDA-Public Use
  Company Number: US-PFIZER INC-2012014504

PATIENT
  Sex: Female
  Weight: 55 kg

DRUGS (4)
  1. PRISTIQ [Suspect]
     Indication: DEPRESSION
     Dosage: 50 MG, 1X/DAY
     Route: 048
     Dates: start: 20120116, end: 20120210
  2. METRONIDAZOLE [Interacting]
     Indication: DIVERTICULITIS
     Dosage: 250 MG, 4X/DAY
     Route: 048
     Dates: start: 20120116, end: 20120126
  3. PRISTIQ [Interacting]
     Indication: AFFECTIVE DISORDER
  4. PROGESTERONE [Concomitant]
     Indication: MOOD SWINGS
     Dosage: DAILY

REACTIONS (6)
  - HEADACHE [None]
  - DRUG INTERACTION [None]
  - NAUSEA [None]
  - INSOMNIA [None]
  - DRY MOUTH [None]
  - DYSGEUSIA [None]
